FAERS Safety Report 25057748 (Version 1)
Quarter: 2025Q1

REPORT INFORMATION
  Report Type: Spontaneous
  Country: US (occurrence: None)
  Receive Date: 20250307
  Receipt Date: 20250307
  Transmission Date: 20250409
  Serious: Yes (Other)
  Sender: FDA-CTU
  Company Number: None

PATIENT
  Age: 78 Year
  Sex: Female

DRUGS (12)
  1. ADEMPAS [Suspect]
     Active Substance: RIOCIGUAT
     Indication: Pulmonary hypertension
     Dosage: FREQUENCY : TWICE A DAY;?
     Route: 048
     Dates: start: 20180309
  2. FUROSEMIDE [Concomitant]
     Active Substance: FUROSEMIDE
  3. albuterol BFA [Concomitant]
  4. PANTOPRAZOLE [Concomitant]
     Active Substance: PANTOPRAZOLE
  5. METFORMIN [Concomitant]
     Active Substance: METFORMIN HYDROCHLORIDE
  6. FAMOTIDINE [Concomitant]
     Active Substance: FAMOTIDINE
  7. ATORVASTATIN [Concomitant]
     Active Substance: ATORVASTATIN
  8. PRADAXA [Concomitant]
     Active Substance: DABIGATRAN ETEXILATE MESYLATE
  9. FLUCONAZOLE [Concomitant]
     Active Substance: FLUCONAZOLE
  10. LOSARTAN [Concomitant]
     Active Substance: LOSARTAN
  11. LEVOTHYROXINE [Concomitant]
     Active Substance: LEVOTHYROXINE
  12. Pataday opht drop [Concomitant]

REACTIONS (2)
  - Back pain [None]
  - Urine analysis abnormal [None]

NARRATIVE: CASE EVENT DATE: 20250224
